FAERS Safety Report 4545001-8 (Version None)
Quarter: 2005Q1

REPORT INFORMATION
  Report Type: 
  Country: None (occurrence: None)
  Receive Date: 20050105
  Receipt Date: 20040528
  Transmission Date: 20050727
  Serious: Yes (Other)
  Sender: FDA-Public Use
  Company Number: GB-GLAXOSMITHKLINE-B0334433A

PATIENT
  Age: 25 Year
  Sex: Male

DRUGS (4)
  1. PAROXETINE HCL [Suspect]
     Indication: DEPRESSION
     Route: 065
     Dates: start: 20020625
  2. ZOPICLONE [Suspect]
     Indication: SLEEP DISORDER
     Route: 065
     Dates: start: 20001001, end: 20030901
  3. LIBRIUM [Concomitant]
     Indication: DRUG WITHDRAWAL SYNDROME
     Route: 065
  4. DIHYDROCODEINE [Concomitant]
     Indication: DRUG WITHDRAWAL SYNDROME
     Route: 065

REACTIONS (15)
  - AGGRESSION [None]
  - ALCOHOL USE [None]
  - AMNESIA [None]
  - ANXIETY [None]
  - DEPENDENCE [None]
  - DRUG WITHDRAWAL SYNDROME [None]
  - EMOTIONAL DISORDER [None]
  - HEADACHE [None]
  - HOMICIDAL IDEATION [None]
  - MURDER [None]
  - NAUSEA [None]
  - NIGHTMARE [None]
  - SLEEP WALKING [None]
  - TREATMENT NONCOMPLIANCE [None]
  - TREMOR [None]
